FAERS Safety Report 9601812 (Version 1)
Quarter: 2013Q4

REPORT INFORMATION
  Report Type: Spontaneous
  Country: FR (occurrence: None)
  Receive Date: 20131002
  Receipt Date: 20131002
  Transmission Date: 20140711
  Serious: Yes (Hospitalization, Other)
  Sender: FDA-Public Use
  Company Number: ACO_38700_2013

PATIENT
  Age: 53 Year
  Sex: Male

DRUGS (3)
  1. FAMPYRA (DALFAMPRIDINE) TABLET, 10MG [Suspect]
     Indication: GAIT DISTURBANCE
     Route: 048
     Dates: start: 20130614
  2. BETAFERON (INTERFERON BETA-1B) [Concomitant]
  3. BACLOFEN (BACLOFEN) [Concomitant]

REACTIONS (3)
  - Muscle spasticity [None]
  - Dysarthria [None]
  - VIIth nerve paralysis [None]
